APPROVED DRUG PRODUCT: MICAFUNGIN
Active Ingredient: MICAFUNGIN SODIUM
Strength: EQ 100MG BASE/VIAL
Dosage Form/Route: POWDER;INTRAVENOUS
Application: N212125 | Product #002
Applicant: TEVA PHARMACEUTICALS USA INC
Approved: Jul 30, 2021 | RLD: Yes | RS: No | Type: DISCN